FAERS Safety Report 11136087 (Version 1)
Quarter: 2015Q2

REPORT INFORMATION
  Report Type: Spontaneous
  Country: GB (occurrence: GB)
  Receive Date: 20150526
  Receipt Date: 20150526
  Transmission Date: 20150821
  Serious: Yes (Disabling)
  Sender: FDA-Public Use
  Company Number: GB-WATSON-2015-10409

PATIENT
  Age: 84 Year
  Sex: Male
  Weight: 71.66 kg

DRUGS (1)
  1. TRIMETHOPRIM (UNKNOWN) [Suspect]
     Active Substance: TRIMETHOPRIM
     Indication: CYSTOSCOPY
     Dosage: 200 MG, BID
     Route: 048
     Dates: start: 20150424, end: 20150426

REACTIONS (3)
  - Lack of spontaneous speech [Recovered/Resolved]
  - Muscular weakness [Recovered/Resolved]
  - Dysstasia [Recovered/Resolved]
